FAERS Safety Report 21646820 (Version 1)
Quarter: 2022Q4

REPORT INFORMATION
  Report Type: Spontaneous
  Country: IT (occurrence: IT)
  Receive Date: 20221127
  Receipt Date: 20221127
  Transmission Date: 20230113
  Serious: Yes (Other)
  Sender: FDA-Public Use
  Company Number: None

PATIENT
  Age: 70 Year
  Sex: Female
  Weight: 57 kg

DRUGS (9)
  1. DONEPEZIL HYDROCHLORIDE [Suspect]
     Active Substance: DONEPEZIL HYDROCHLORIDE
     Indication: Dementia Alzheimer^s type
     Dosage: 1 DOSAGE FORMS DAILY; REPORTS START OF THERAPY FROM MAY TO JULY 2019 WITH DONEPEZIL TEVA* 28CPR RIV
     Dates: start: 201905, end: 201907
  2. IRBESARTAN [Concomitant]
     Active Substance: IRBESARTAN
     Indication: Cardiac failure
     Dosage: DECLARES THERAPEUTIC CONTINUITY FROM 03/13/2019 WITH APROVEL*28CPR 150MG: IRBESARTAN (PA).
     Dates: start: 20190313
  3. RANIBEN [Concomitant]
     Indication: Gastrooesophageal reflux disease
     Dosage: DECLARES THERAPEUTIC CONTINUITY FROM 08/04/2019 WITH RANIBEN*20CPR RIV 150MG  RANITIDINA (PA)
     Dates: start: 20190408
  4. ATORVASTATIN [Concomitant]
     Active Substance: ATORVASTATIN
     Indication: Dyslipidaemia
     Dosage: ATORVASTATINA TEVA ITALIA, DECLARES THERAPEUTIC CONTINUITY FROM 04/29/2019 WITH ATORVASTATIN TE*30CP
     Dates: start: 20190429
  5. AMITRIPTYLINE HYDROCHLORIDE [Concomitant]
     Active Substance: AMITRIPTYLINE HYDROCHLORIDE
     Indication: Depression
     Dosage: DECLARES THERAPEUTIC CONTINUITY FROM 09/04/2019 WITH ADEPRIL* 10MG 30 CPR RIV-AMITRIPTILINA (PA).
     Dates: start: 20190409
  6. ASPIRIN [Concomitant]
     Active Substance: ASPIRIN
     Indication: Hypertension
     Dosage: DECLARES THERAPEUTIC CONTINUITY FROM 04/29/2019 WITH CARDIOASPIRIN*30CPR GAST 100MG: ACETYLSALICYLIC
     Dates: start: 20190429
  7. CHOLECALCIFEROL [Concomitant]
     Active Substance: CHOLECALCIFEROL
     Indication: Osteoporosis
     Dosage: DECLARES THERAPEUTIC CONTINUITY FROM 08/04/2019 WITH DIBASE*OS GTT 10ML 10000UI/ML: COLECALCIFEROL (
     Dates: start: 20190408
  8. POTASSIUM BICARBONATE\SODIUM ALGINATE [Concomitant]
     Active Substance: POTASSIUM BICARBONATE\SODIUM ALGINATE
     Indication: Gastrooesophageal reflux disease
     Dosage: DECLARES THERAPEUTIC CONTINUITY FROM 04/29/2019 WITH GAVISCON ADVANCE*20BUST 10MLME: SODIUM ALGINATE
     Dates: start: 20190429
  9. CHOLINE ALFOSCERATE [Concomitant]
     Active Substance: CHOLINE ALFOSCERATE
     Indication: Cerebral circulatory failure
     Dosage: DECLARES THERAPEUTIC CONTINUITY IN 2019 WITH DELECIT, DOSE AND DOSAGE FORM NOT SPECIFIED.
     Dates: start: 2019

REACTIONS (1)
  - Hallucination, visual [Recovered/Resolved]

NARRATIVE: CASE EVENT DATE: 20190501
